FAERS Safety Report 18100030 (Version 1)
Quarter: 2020Q3

REPORT INFORMATION
  Report Type: Spontaneous
  Country: PL (occurrence: PL)
  Receive Date: 20200731
  Receipt Date: 20200731
  Transmission Date: 20201103
  Serious: No
  Sender: FDA-Public Use
  Company Number: PL-B.BRAUN MEDICAL INC.-2088008

PATIENT
  Age: 46 Year
  Sex: Female
  Weight: 63 kg

DRUGS (2)
  1. KETONAL [Concomitant]
     Route: 042
     Dates: start: 20170621, end: 20170624
  2. METRONIDAZOLE INJECTION USP (5 MG/ML) IN PAB? PLASTIC CONTAINER (NDA 0 [Suspect]
     Active Substance: METRONIDAZOLE
     Route: 042
     Dates: start: 20170621, end: 20170622

REACTIONS (1)
  - Vomiting [None]

NARRATIVE: CASE EVENT DATE: 20170622
